FAERS Safety Report 12361958 (Version 2)
Quarter: 2019Q4

REPORT INFORMATION
  Report Type: Spontaneous
  Country: US (occurrence: US)
  Receive Date: 20160512
  Receipt Date: 20191213
  Transmission Date: 20200122
  Serious: No
  Sender: FDA-Public Use
  Company Number: US-UCBSA-2015034234

PATIENT
  Sex: Female
  Weight: 64 kg

DRUGS (8)
  1. LORAZEPAM. [Concomitant]
     Active Substance: LORAZEPAM
     Indication: ANXIETY
     Dosage: 1 MG TABLET 2X/DAY (BID) STARTED IN APPROXIMATELY 2013
  2. CIMZIA [Suspect]
     Active Substance: CERTOLIZUMAB PEGOL
     Indication: RHEUMATOID ARTHRITIS
     Dosage: 200 MG, EV 2 WEEKS(QOW)
     Dates: start: 201504
  3. SYNTHROID [Concomitant]
     Active Substance: LEVOTHYROXINE SODIUM
     Indication: PRODUCT USED FOR UNKNOWN INDICATION
     Dosage: 88 ?G, ONCE DAILY (QD)
     Dates: start: 1999
  4. PROLIA [Concomitant]
     Active Substance: DENOSUMAB
     Indication: OSTEOPOROSIS
     Dosage: UNK, EV 6 MONTHS
  5. PREDNISONE. [Concomitant]
     Active Substance: PREDNISONE
     Indication: PRODUCT USED FOR UNKNOWN INDICATION
     Dosage: OCCASIONALLY
  6. DILTIAZEM. [Concomitant]
     Active Substance: DILTIAZEM
     Indication: ATRIAL FIBRILLATION
     Dosage: 120 MG TABLET , 2X/DAY (BID)
     Dates: start: 2008
  7. CORTISONE [Concomitant]
     Active Substance: CORTISONE
     Indication: PRODUCT USED FOR UNKNOWN INDICATION
     Dosage: OCCASIONALLY
  8. FLECAINIDE [Concomitant]
     Active Substance: FLECAINIDE
     Indication: ATRIAL FIBRILLATION
     Dosage: 50 MG TABLET  2X/DAY (BID)
     Dates: start: 2008

REACTIONS (3)
  - Weight decreased [Not Recovered/Not Resolved]
  - Contusion [Not Recovered/Not Resolved]
  - Cystitis [Not Recovered/Not Resolved]

NARRATIVE: CASE EVENT DATE: 2015
